FAERS Safety Report 5858142-X (Version None)
Quarter: 2008Q3

REPORT INFORMATION
  Report Type: 
  Country: None (occurrence: None)
  Receive Date: 20080826
  Receipt Date: 20080822
  Transmission Date: 20090109
  Serious: Yes (Hospitalization)
  Sender: FDA-Public Use
  Company Number: A0688705A

PATIENT
  Age: 58 Year
  Sex: Male
  Weight: 88.6 kg

DRUGS (9)
  1. AVANDIA [Suspect]
     Dosage: 8MG PER DAY
     Route: 048
     Dates: start: 20040101, end: 20070101
  2. GLUCOPHAGE [Concomitant]
     Dates: start: 19870101
  3. METFORMIN HCL [Concomitant]
     Dates: start: 19980101
  4. LANTUS [Concomitant]
     Dates: start: 20050101
  5. GLUCOTROL [Concomitant]
     Dates: start: 20040101
  6. GLUCOTROL XL [Concomitant]
     Dates: start: 20040101, end: 20040101
  7. FLOMAX [Concomitant]
  8. PROSCAR [Concomitant]
  9. NEXIUM [Concomitant]

REACTIONS (2)
  - CARDIAC FAILURE CONGESTIVE [None]
  - MYOCARDIAL ISCHAEMIA [None]
